FAERS Safety Report 9587722 (Version 1)
Quarter: 2013Q4

REPORT INFORMATION
  Report Type: Spontaneous
  Country: FR (occurrence: FR)
  Receive Date: 20131003
  Receipt Date: 20131003
  Transmission Date: 20140711
  Serious: Yes (Hospitalization)
  Sender: FDA-Public Use
  Company Number: FR-ELI_LILLY_AND_COMPANY-FR201309007137

PATIENT
  Age: 70 Year
  Sex: Male

DRUGS (4)
  1. ALIMTA [Suspect]
     Dosage: 500 MG, CYCLICAL
     Route: 042
     Dates: start: 20111026, end: 20121108
  2. AVASTIN [Suspect]
     Dosage: 25 DF, CYCLICAL
     Route: 065
     Dates: start: 20100630, end: 20100928
  3. CISPLATIN [Concomitant]
     Dosage: UNK
  4. CARBOPLATINE [Concomitant]
     Dosage: UNK

REACTIONS (5)
  - Deep vein thrombosis [Recovered/Resolved]
  - Erysipelas [Recovered/Resolved]
  - Off label use [Unknown]
  - Gastrointestinal toxicity [Unknown]
  - Nephropathy toxic [Unknown]
